FAERS Safety Report 6984411-6 (Version None)
Quarter: 2010Q3

REPORT INFORMATION
  Report Type: 
  Country: None (occurrence: None)
  Receive Date: 20100915
  Receipt Date: 20100907
  Transmission Date: 20110219
  Serious: Yes (Death, Other)
  Sender: FDA-Public Use
  Company Number: SG-CELGENEUS-286-20785-10090921

PATIENT

DRUGS (3)
  1. THALIDOMIDE [Suspect]
     Indication: MULTIPLE MYELOMA
     Route: 048
  2. DEXAMETHASONE [Suspect]
     Indication: MULTIPLE MYELOMA
     Route: 065
  3. ZOLEDRONIC ACID [Suspect]
     Indication: MULTIPLE MYELOMA
     Route: 065

REACTIONS (6)
  - BRONCHOPNEUMONIA [None]
  - DEATH [None]
  - GASTROINTESTINAL INFECTION [None]
  - PULMONARY EMBOLISM [None]
  - SEPSIS [None]
  - URINARY TRACT INFECTION [None]
